FAERS Safety Report 25263108 (Version 1)
Quarter: 2025Q2

REPORT INFORMATION
  Report Type: Spontaneous
  Country: US (occurrence: None)
  Receive Date: 20250501
  Receipt Date: 20250501
  Transmission Date: 20250717
  Serious: Yes (Hospitalization)
  Sender: FDA-CTU
  Company Number: None

PATIENT
  Age: 4 Year
  Sex: Female

DRUGS (1)
  1. VIGABATRIN [Suspect]
     Active Substance: VIGABATRIN
     Indication: Focal dyscognitive seizures
     Dosage: 7.5 ML TWICE A DAY   GTUBE ?
     Route: 050
     Dates: start: 20211116

REACTIONS (2)
  - Rhinovirus infection [None]
  - Respiratory failure [None]

NARRATIVE: CASE EVENT DATE: 20250322
